FAERS Safety Report 18716049 (Version 1)
Quarter: 2021Q1

REPORT INFORMATION
  Report Type: Spontaneous
  Country: US (occurrence: US)
  Receive Date: 20210108
  Receipt Date: 20210108
  Transmission Date: 20210419
  Serious: Yes (Life-Threatening, Hospitalization, Other)
  Sender: FDA-Public Use
  Company Number: US-ACCORD-214026

PATIENT
  Age: 81 Year
  Sex: Female

DRUGS (1)
  1. ALLOPURINOL. [Suspect]
     Active Substance: ALLOPURINOL
     Indication: PRODUCT USED FOR UNKNOWN INDICATION

REACTIONS (9)
  - Thrombocytopenia [Unknown]
  - Acute kidney injury [Unknown]
  - Renal tubular atrophy [Unknown]
  - Glomerulosclerosis [Unknown]
  - Tubulointerstitial nephritis [Unknown]
  - Anaemia [Unknown]
  - Amyloidosis [Unknown]
  - Drug reaction with eosinophilia and systemic symptoms [Unknown]
  - Kidney fibrosis [Unknown]
